FAERS Safety Report 15892942 (Version 1)
Quarter: 2019Q1

REPORT INFORMATION
  Report Type: Report from Study
  Country: US (occurrence: US)
  Receive Date: 20190130
  Receipt Date: 20190130
  Transmission Date: 20190417
  Serious: No
  Sender: FDA-Public Use
  Company Number: US-EXELIXIS-CABO-18016442

PATIENT
  Sex: Male
  Weight: 101.59 kg

DRUGS (2)
  1. CABOMETYX [Suspect]
     Active Substance: CABOZANTINIB S-MALATE
     Indication: RENAL CANCER
     Dosage: 60 MG, QD
     Dates: start: 20180913, end: 20181010
  2. CABOMETYX [Suspect]
     Active Substance: CABOZANTINIB S-MALATE
     Dosage: 20 MG, UNK
     Dates: start: 201811

REACTIONS (9)
  - Pain [Unknown]
  - Decreased appetite [Not Recovered/Not Resolved]
  - Liver function test increased [Recovered/Resolved]
  - Chromaturia [Recovered/Resolved]
  - Arthralgia [Unknown]
  - Mouth haemorrhage [Recovering/Resolving]
  - Fatigue [Unknown]
  - Blood calcium decreased [Unknown]
  - Pruritus [Recovering/Resolving]

NARRATIVE: CASE EVENT DATE: 2018
